FAERS Safety Report 7764431-4 (Version None)
Quarter: 2011Q3

REPORT INFORMATION
  Report Type: 
  Country: None (occurrence: None)
  Receive Date: 20110921
  Receipt Date: 20101027
  Transmission Date: 20111222
  Serious: No
  Sender: FDA-Public Use
  Company Number: US-BAYER-201040771NA

PATIENT
  Age: 5 Month
  Sex: Female

DRUGS (2)
  1. MIRENA [Suspect]
     Route: 063
  2. MIRENA [Suspect]
     Route: 063

REACTIONS (1)
  - CONSTIPATION [None]
